FAERS Safety Report 10521560 (Version 1)
Quarter: 2014Q4

REPORT INFORMATION
  Report Type: Spontaneous
  Country: FR (occurrence: FR)
  Receive Date: 20141016
  Receipt Date: 20141016
  Transmission Date: 20150528
  Serious: Yes (Hospitalization)
  Sender: FDA-Public Use
  Company Number: FR-JNJFOC-20141002656

PATIENT
  Age: 33 Year
  Sex: Male

DRUGS (9)
  1. SPORANOX [Suspect]
     Active Substance: ITRACONAZOLE\SODIUM CHLORIDE
     Indication: BRONCHOPULMONARY ASPERGILLOSIS
     Dosage: 100 MG CAPSULE
     Route: 048
     Dates: start: 200810, end: 201304
  2. HYDROCORTISONE. [Interacting]
     Active Substance: HYDROCORTISONE
     Indication: ADRENAL INSUFFICIENCY
     Route: 048
  3. COLIMYCIN [Concomitant]
     Route: 055
  4. BACTRIM [Concomitant]
     Active Substance: SULFAMETHOXAZOLE\TRIMETHOPRIM
     Route: 065
  5. FLIXOTIDE [Interacting]
     Active Substance: FLUTICASONE PROPIONATE
     Indication: PRODUCT USED FOR UNKNOWN INDICATION
     Dosage: 500?G/DOSES
     Route: 055
  6. ONBREZ [Concomitant]
     Active Substance: INDACATEROL
     Route: 065
  7. HYDROCORTISONE. [Interacting]
     Active Substance: HYDROCORTISONE
     Indication: ADRENAL INSUFFICIENCY
     Route: 048
     Dates: start: 2012
  8. PULMICORT TURBUHALER [Interacting]
     Active Substance: BUDESONIDE
     Indication: PRODUCT USED FOR UNKNOWN INDICATION
     Route: 055
  9. OLMETEC [Concomitant]
     Active Substance: OLMESARTAN MEDOXOMIL
     Route: 065

REACTIONS (3)
  - Overdose [Unknown]
  - Drug interaction [Recovered/Resolved]
  - Cushing^s syndrome [Recovered/Resolved with Sequelae]

NARRATIVE: CASE EVENT DATE: 201302
